FAERS Safety Report 8136108 (Version 3)
Quarter: 2013Q3

REPORT INFORMATION
  Report Type: Spontaneous
  Country: US (occurrence: US)
  Receive Date: 20110914
  Receipt Date: 20130823
  Transmission Date: 20140515
  Serious: Yes (Hospitalization)
  Sender: FDA-Public Use
  Company Number: US-GLAXOSMITHKLINE-A0843271A

PATIENT
  Age: 44 Year
  Sex: Male
  Weight: 104 kg

DRUGS (1)
  1. ROSIGLITAZONE MALEATE [Suspect]
     Indication: DIABETES MELLITUS
     Dosage: 8MG PER DAY
     Route: 048
     Dates: start: 20070514

REACTIONS (2)
  - Cerebrovascular accident [Not Recovered/Not Resolved]
  - Cardiac failure congestive [Unknown]
